FAERS Safety Report 6393020 (Version 2)
Quarter: 2014Q1

REPORT INFORMATION
  Report Type: Spontaneous
  Country: US (occurrence: None)
  Receive Date: 20070703
  Receipt Date: 20130315
  Transmission Date: 20141002
  Serious: Yes (Other)
  Sender: FDA-Public Use
  Company Number: US-JNJFOC-20060702482

PATIENT
  Age: 12 Year
  Sex: Male
  Weight: 35.38 kg

DRUGS (1)
  1. MOTRIN IB [Suspect]
     Indication: ARTHRALGIA
     Dosage: 200 MG, 2 IN 1 DAY
     Route: 048
     Dates: start: 200602

REACTIONS (2)
  - Intestinal haemorrhage [None]
  - Gastrointestinal inflammation [None]
